FAERS Safety Report 5485603-8 (Version None)
Quarter: 2007Q4

REPORT INFORMATION
  Report Type: 
  Country: None (occurrence: None)
  Receive Date: 20071011
  Receipt Date: 20071011
  Transmission Date: 20080405
  Serious: Yes (Death)
  Sender: FDA-Public Use
  Company Number: None

PATIENT
  Age: 42 Year
  Sex: Female
  Weight: 61.6892 kg

DRUGS (2)
  1. RITUXAN [Suspect]
     Indication: DIFFUSE LARGE B-CELL LYMPHOMA
     Dosage: CHEMO SESSION EVERY 3 WEEKS IV DRIP
     Route: 041
     Dates: start: 20070615, end: 20070917
  2. RITUXAN [Suspect]
     Indication: NON-HODGKIN'S LYMPHOMA
     Dosage: CHEMO SESSION EVERY 3 WEEKS IV DRIP
     Route: 041
     Dates: start: 20070615, end: 20070917

REACTIONS (10)
  - ABASIA [None]
  - AMNESIA [None]
  - COMMUNICATION DISORDER [None]
  - CONDITION AGGRAVATED [None]
  - DIZZINESS [None]
  - GAIT DISTURBANCE [None]
  - HEADACHE [None]
  - MEMORY IMPAIRMENT [None]
  - SPEECH DISORDER [None]
  - VISION BLURRED [None]
